FAERS Safety Report 20643221 (Version 3)
Quarter: 2022Q2

REPORT INFORMATION
  Report Type: Spontaneous
  Country: DE (occurrence: DE)
  Receive Date: 20220328
  Receipt Date: 20220413
  Transmission Date: 20220721
  Serious: Yes (Hospitalization, Other)
  Sender: FDA-Public Use
  Company Number: DE-CHEPLA-2022000747

PATIENT
  Age: 83 Year
  Sex: Male

DRUGS (29)
  1. TAMSULOSIN [Suspect]
     Active Substance: TAMSULOSIN
     Indication: Product used for unknown indication
     Dosage: UNK, QD (0-0-1)
     Route: 065
     Dates: end: 20220205
  2. SIMVASTATIN [Suspect]
     Active Substance: SIMVASTATIN
     Indication: Product used for unknown indication
     Dosage: UNK, QD (0-0-1)
     Route: 065
     Dates: end: 20220205
  3. SIMVASTATIN [Suspect]
     Active Substance: SIMVASTATIN
     Dosage: UNK, QD; ONCE DAILY (0-0-1)
     Route: 065
     Dates: end: 20220205
  4. BICALUTAMIDE [Suspect]
     Active Substance: BICALUTAMIDE
     Indication: Product used for unknown indication
     Dosage: UNK (20 DAYS UNTIL 2022-02-01)
     Route: 065
     Dates: start: 20220113, end: 20220201
  5. BICALUTAMIDE [Suspect]
     Active Substance: BICALUTAMIDE
     Dosage: UNK UNK, UNKNOWN FREQ. (20 DAYS UNTIL 01-FEB-2022)
     Route: 065
     Dates: start: 20220113, end: 20220201
  6. ALLOPURINOL [Suspect]
     Active Substance: ALLOPURINOL
     Indication: Product used for unknown indication
     Dosage: UNK, QD; ONCE DAILY (0-0-1)
     Route: 065
     Dates: end: 20220205
  7. ALLOPURINOL [Suspect]
     Active Substance: ALLOPURINOL
     Dosage: UNK UNK, ONCE DAILY (0-0-1)
     Route: 065
     Dates: end: 20220205
  8. FINASTERIDE [Suspect]
     Active Substance: FINASTERIDE
     Indication: Product used for unknown indication
     Dosage: UNK, QD (1-0-0)
     Route: 065
     Dates: end: 20220205
  9. FINASTERIDE [Suspect]
     Active Substance: FINASTERIDE
     Dosage: UNK, QD; ONCE DAILY (1-0-0)
     Route: 065
     Dates: end: 20220205
  10. BUSERELIN ACETATE [Suspect]
     Active Substance: BUSERELIN ACETATE
     Indication: Product used for unknown indication
     Dosage: 9.5 MILLIGRAM/ START DATE: 28-JAN-2022
     Route: 058
     Dates: start: 20220128
  11. BUSERELIN ACETATE [Suspect]
     Active Substance: BUSERELIN ACETATE
     Dosage: 9.5 MG, UNKNOWN FREQ.
     Route: 058
     Dates: start: 20220128
  12. MARCUMAR [Concomitant]
     Active Substance: PHENPROCOUMON
     Indication: Product used for unknown indication
     Dosage: UNK, QD (0-0-1)
     Route: 065
  13. MARCUMAR [Concomitant]
     Active Substance: PHENPROCOUMON
     Dosage: UNK UNK, ONCE DAILY (1-0-0)
     Route: 065
  14. PREDNISOLONE [Concomitant]
     Active Substance: PREDNISOLONE
     Indication: Product used for unknown indication
     Dosage: UNK, QD(0-0-1)
     Route: 065
  15. PREDNISOLONE [Concomitant]
     Active Substance: PREDNISOLONE
     Dosage: UNK, QD; ONCE DAILY (1-0-0)
     Route: 065
  16. CHOLECALCIFEROL [Concomitant]
     Active Substance: CHOLECALCIFEROL
     Indication: Product used for unknown indication
     Dosage: 20000 INTERNATIONAL UNIT, QW
     Route: 065
  17. CHOLECALCIFEROL [Concomitant]
     Active Substance: CHOLECALCIFEROL
     Dosage: 20000 INTERNATIONAL UNIT, QW,ONCE A WEEK
     Route: 065
  18. BISOPROLOL [Concomitant]
     Active Substance: BISOPROLOL
     Indication: Product used for unknown indication
     Dosage: UNK, BID (1-0-1)
     Route: 065
  19. BISOPROLOL [Concomitant]
     Active Substance: BISOPROLOL
     Dosage: UNK, BID; EVERY 12 HOURS (1-0-1)
     Route: 065
  20. ERYTHROPOIETIN [Concomitant]
     Active Substance: ERYTHROPOIETIN
     Indication: Product used for unknown indication
     Dosage: 3000 INTERNATIONAL UNIT, QW
     Route: 065
  21. ERYTHROPOIETIN [Concomitant]
     Active Substance: ERYTHROPOIETIN
     Dosage: 3000 INTERNATIONAL UNIT, QW
     Route: 065
  22. FELODIPINE [Concomitant]
     Active Substance: FELODIPINE
     Indication: Product used for unknown indication
     Dosage: 0.5 DF, QD; ONCE DAILY (0-0-0,5)
     Route: 065
  23. FELODIPINE [Concomitant]
     Active Substance: FELODIPINE
     Dosage: 0.5 DF, QD; 0-0-0,5
     Route: 065
  24. METAMIZOLE [Concomitant]
     Active Substance: METAMIZOLE
     Dosage: UNK, TID (1-1-1)
     Route: 065
  25. METAMIZOLE [Concomitant]
     Active Substance: METAMIZOLE
     Dosage: UNK, TID; EVERY 8 HOURS (1-1-1)
     Route: 065
  26. CYCLOSPORINE [Concomitant]
     Active Substance: CYCLOSPORINE
     Indication: Product used for unknown indication
     Dosage: UNK, BID (1-0-1)
     Route: 065
  27. CYCLOSPORINE [Concomitant]
     Active Substance: CYCLOSPORINE
     Dosage: UNK, BID; EVERY 12 HOURS (1-0-1)
     Route: 065
  28. TORSEMIDE [Concomitant]
     Active Substance: TORSEMIDE
     Indication: Product used for unknown indication
     Dosage: UNK, BID (1-1-0)
     Route: 065
  29. TORSEMIDE [Concomitant]
     Active Substance: TORSEMIDE
     Dosage: UNK, BID; EVERY 12 HOURS (1-1-0)
     Route: 065

REACTIONS (9)
  - Muscular weakness [Not Recovered/Not Resolved]
  - Product prescribing error [Unknown]
  - Blood creatine phosphokinase increased [Unknown]
  - Gamma-glutamyltransferase increased [Unknown]
  - Blood lactate dehydrogenase increased [Unknown]
  - Aspartate aminotransferase increased [Unknown]
  - Alanine aminotransferase increased [Unknown]
  - Pyrexia [Recovered/Resolved]
  - Off label use [Unknown]

NARRATIVE: CASE EVENT DATE: 20220128
